FAERS Safety Report 14400703 (Version 1)
Quarter: 2018Q1

REPORT INFORMATION
  Report Type: Spontaneous
  Country: GB (occurrence: GB)
  Receive Date: 20180117
  Receipt Date: 20180117
  Transmission Date: 20180509
  Serious: Yes (Hospitalization)
  Sender: FDA-Public Use
  Company Number: GB-ORION CORPORATION ORION PHARMA-TREX2018-0133

PATIENT
  Sex: Male

DRUGS (1)
  1. METHOTREXATE (TRADE NAME UNKNOWN) [Suspect]
     Active Substance: METHOTREXATE
     Indication: RHEUMATOID ARTHRITIS
     Route: 065
     Dates: start: 201701

REACTIONS (7)
  - Dyspnoea [Unknown]
  - Loss of consciousness [Unknown]
  - Lung disorder [Unknown]
  - Oropharyngeal pain [Unknown]
  - Dry throat [Unknown]
  - Pneumothorax [Unknown]
  - Infection [Unknown]

NARRATIVE: CASE EVENT DATE: 201711
